FAERS Safety Report 17029682 (Version 1)
Quarter: 2019Q4

REPORT INFORMATION
  Report Type: Spontaneous
  Country: GB (occurrence: GB)
  Receive Date: 20191114
  Receipt Date: 20191114
  Transmission Date: 20200122
  Serious: Yes (Hospitalization, Other)
  Sender: FDA-Public Use
  Company Number: GB-TEVA-2019-GB-1136861

PATIENT
  Age: 83 Year
  Sex: Female
  Weight: 69 kg

DRUGS (6)
  1. ACETYLSALICYLIC ACID [Concomitant]
     Active Substance: ASPIRIN
  2. DOXAZOSIN [Concomitant]
     Active Substance: DOXAZOSIN MESYLATE
  3. ATORVASTATIN [Concomitant]
     Active Substance: ATORVASTATIN
  4. IRBESARTAN. [Suspect]
     Active Substance: IRBESARTAN
     Indication: GASTROOESOPHAGEAL REFLUX DISEASE
     Dosage: IN THE MORNING, 300 MG PER DAY
     Route: 048
     Dates: end: 20170120
  5. LANSOPRAZOLE. [Suspect]
     Active Substance: LANSOPRAZOLE
     Indication: HYPERTENSION
     Dosage: IN THE MORNING, 30 MG PER DAY
     Route: 048
     Dates: end: 20170120
  6. INDAPAMIDE. [Suspect]
     Active Substance: INDAPAMIDE
     Indication: HYPERTENSION
     Dosage: IN THE MORNING, 2.5 MG
     Route: 048
     Dates: end: 20170120

REACTIONS (1)
  - Hyponatraemia [Recovering/Resolving]

NARRATIVE: CASE EVENT DATE: 20170120
